FAERS Safety Report 11559315 (Version 1)
Quarter: 2015Q3

REPORT INFORMATION
  Report Type: Spontaneous
  Country: US (occurrence: None)
  Receive Date: 20150925
  Receipt Date: 20150925
  Transmission Date: 20151125
  Serious: Yes (Life-Threatening, Disabling)
  Sender: FDA-Public Use
  Company Number: None

PATIENT
  Age: 63 Year
  Sex: Female
  Weight: 51.26 kg

DRUGS (9)
  1. CALCIUM + VITAMIN D [Concomitant]
     Active Substance: CALCIUM\VITAMIN D
  2. SEPTOCAINE [Suspect]
     Active Substance: ARTICAINE HYDROCHLORIDE\EPINEPHRINE BITARTRATE
  3. FISH OIL [Concomitant]
     Active Substance: FISH OIL
  4. LIDOCAINE. [Suspect]
     Active Substance: LIDOCAINE
     Indication: TOOTH DISORDER
     Dates: start: 20110801, end: 20110801
  5. FOLIC ACID. [Concomitant]
     Active Substance: FOLIC ACID
  6. SUMATRIPTAN. [Concomitant]
     Active Substance: SUMATRIPTAN
  7. ATENONOL [Concomitant]
  8. MULTIVITAMIN [Concomitant]
     Active Substance: VITAMINS
  9. MONTELUKAST [Concomitant]
     Active Substance: MONTELUKAST SODIUM

REACTIONS (3)
  - Myocardial infarction [None]
  - Contraindicated drug administered [None]
  - Transient ischaemic attack [None]

NARRATIVE: CASE EVENT DATE: 20110801
